FAERS Safety Report 12080461 (Version 1)
Quarter: 2016Q1

REPORT INFORMATION
  Report Type: Spontaneous
  Country: US (occurrence: None)
  Receive Date: 20160212
  Receipt Date: 20160212
  Transmission Date: 20160526
  Serious: Yes (Hospitalization)
  Sender: FDA-Public Use
  Company Number: None

PATIENT
  Age: 54 Year
  Sex: Female
  Weight: 88.5 kg

DRUGS (1)
  1. CISPLATIN. [Suspect]
     Active Substance: CISPLATIN
     Dates: end: 20160119

REACTIONS (6)
  - Vomiting [None]
  - Hypokalaemia [None]
  - Wheelchair user [None]
  - Nausea [None]
  - Hypomagnesaemia [None]
  - Insomnia [None]

NARRATIVE: CASE EVENT DATE: 20160129
